FAERS Safety Report 8125057-6 (Version None)
Quarter: 2012Q1

REPORT INFORMATION
  Report Type: 
  Country: None (occurrence: None)
  Receive Date: 20120209
  Receipt Date: 20120131
  Transmission Date: 20120608
  Serious: Yes (Hospitalization, Other)
  Sender: FDA-Public Use
  Company Number: AU-ROCHE-GNE323745

PATIENT
  Sex: Female

DRUGS (2)
  1. LUCENTIS [Suspect]
     Indication: AGE-RELATED MACULAR DEGENERATION
     Dosage: 0.5 ML, UNKNOWN
     Route: 050
     Dates: start: 20090301
  2. LUCENTIS [Suspect]
     Dosage: 0.5 ML, UNKNOWN
     Route: 050
     Dates: start: 20110701

REACTIONS (2)
  - AORTIC VALVE DISEASE [None]
  - DISEASE PROGRESSION [None]
